FAERS Safety Report 5035899-1 (Version None)
Quarter: 2006Q2

REPORT INFORMATION
  Report Type: 
  Country: None (occurrence: None)
  Receive Date: 20060622
  Receipt Date: 20060608
  Transmission Date: 20061013
  Serious: Yes (Hospitalization, Other)
  Sender: FDA-Public Use
  Company Number: 2005BI014501

PATIENT
  Age: 66 Year
  Sex: Female

DRUGS (3)
  1. AVONEX [Suspect]
     Indication: MULTIPLE SCLEROSIS
     Dosage: 30 UG;QW;IM
     Route: 030
     Dates: start: 19980910
  2. AVONEX [Suspect]
     Indication: MULTIPLE SCLEROSIS
     Dosage: IM
  3. NATALIZUMAB [Suspect]
     Indication: MULTIPLE SCLEROSIS
     Dosage: 300 MG;QM;IV
     Route: 030
     Dates: start: 20050125, end: 20050225

REACTIONS (13)
  - ANAESTHETIC COMPLICATION [None]
  - APHASIA [None]
  - BALANCE DISORDER [None]
  - COLONIC POLYP [None]
  - DRUG HYPERSENSITIVITY [None]
  - FALL [None]
  - FATIGUE [None]
  - HEADACHE [None]
  - OVARIAN CYST [None]
  - PRECANCEROUS CELLS PRESENT [None]
  - PROCEDURAL PAIN [None]
  - PYREXIA [None]
  - SKIN CANCER [None]
